FAERS Safety Report 25322154 (Version 1)
Quarter: 2025Q2

REPORT INFORMATION
  Report Type: Spontaneous
  Country: JP (occurrence: JP)
  Receive Date: 20250516
  Receipt Date: 20250516
  Transmission Date: 20250717
  Serious: Yes (Life-Threatening, Other)
  Sender: ALKEM
  Company Number: JP-ALKEM LABORATORIES LIMITED-JP-ALKEM-2024-17913

PATIENT
  Age: 61 Year
  Sex: Male

DRUGS (1)
  1. RILUZOLE [Suspect]
     Active Substance: RILUZOLE
     Indication: Amyotrophic lateral sclerosis
     Dosage: 100 MILLIGRAM, QD
     Route: 065

REACTIONS (1)
  - Interstitial lung disease [Recovered/Resolved]
